FAERS Safety Report 4383171-5 (Version None)
Quarter: 2004Q2

REPORT INFORMATION
  Report Type: 
  Country: None (occurrence: None)
  Receive Date: 20040618
  Receipt Date: 20040604
  Transmission Date: 20050107
  Serious: Yes (Hospitalization)
  Sender: FDA-Public Use
  Company Number: 237448

PATIENT
  Age: 12 Year
  Sex: Male
  Weight: 38 kg

DRUGS (5)
  1. NORDITROPIN [Suspect]
     Indication: RENAL FAILURE CHRONIC
     Dosage: 1.5 MG QD SUBCUTANEOUS
     Route: 058
     Dates: start: 20021120, end: 20040503
  2. UN-ALFA [Concomitant]
  3. DITROPAN [Concomitant]
  4. (OXYBUTYNIN HYDROCHLORIDE) [Concomitant]
  5. BACTRIM [Concomitant]

REACTIONS (1)
  - OSTEOCHONDROSIS [None]
